FAERS Safety Report 7622098-X (Version None)
Quarter: 2011Q3

REPORT INFORMATION
  Report Type: 
  Country: None (occurrence: None)
  Receive Date: 20110720
  Receipt Date: 20110304
  Transmission Date: 20111222
  Serious: Yes (Other)
  Sender: FDA-Public Use
  Company Number: US-BAYER-201037906NA

PATIENT
  Age: 36 Year
  Sex: Female
  Weight: 61.224 kg

DRUGS (4)
  1. RANITIDINE [Concomitant]
  2. ACIPHEX [Concomitant]
  3. LACTAID [Concomitant]
  4. YASMIN [Suspect]
     Indication: ACNE

REACTIONS (4)
  - GALLBLADDER DISORDER [None]
  - CHOLECYSTECTOMY [None]
  - GALLBLADDER PAIN [None]
  - CHOLECYSTITIS [None]
